FAERS Safety Report 12900635 (Version 1)
Quarter: 2016Q4

REPORT INFORMATION
  Report Type: Spontaneous
  Country: US (occurrence: US)
  Receive Date: 20161101
  Receipt Date: 20161101
  Transmission Date: 20170207
  Serious: Yes (Death)
  Sender: FDA-Public Use
  Company Number: US-PFIZER INC-2016504969

PATIENT
  Age: 68 Year
  Sex: Male

DRUGS (5)
  1. MEROPENEM. [Suspect]
     Active Substance: MEROPENEM
     Indication: ESCHERICHIA BACTERAEMIA
     Dosage: UNK
     Route: 042
  2. PIPERACILLIN/TAZOBACTAM [Suspect]
     Active Substance: PIPERACILLIN SODIUM\TAZOBACTAM SODIUM
     Indication: PERITONITIS BACTERIAL
     Dosage: UNK
  3. METRONIDAZOLE. [Suspect]
     Active Substance: METRONIDAZOLE
     Indication: ESCHERICHIA BACTERAEMIA
  4. METRONIDAZOLE. [Suspect]
     Active Substance: METRONIDAZOLE
     Indication: CLOSTRIDIUM BACTERAEMIA
     Dosage: UNK
     Route: 042
  5. MEROPENEM. [Suspect]
     Active Substance: MEROPENEM
     Indication: CLOSTRIDIUM BACTERAEMIA

REACTIONS (8)
  - Drug ineffective [Fatal]
  - Renal failure [None]
  - Immunosuppression [None]
  - Enterococcus test positive [None]
  - Myocardial infarction [None]
  - Coagulopathy [None]
  - Peritonitis [None]
  - Drug resistance [None]
